FAERS Safety Report 9830383 (Version 1)
Quarter: 2014Q1

REPORT INFORMATION
  Report Type: Spontaneous
  Country: IT (occurrence: IT)
  Receive Date: 20140120
  Receipt Date: 20140120
  Transmission Date: 20141002
  Serious: Yes (Other)
  Sender: FDA-Public Use
  Company Number: IT-JNJFOC-20140109065

PATIENT
  Age: 61 Year
  Sex: Female

DRUGS (5)
  1. KOLIBRI [Suspect]
     Indication: SCIATICA
     Route: 048
     Dates: start: 20131213, end: 20131214
  2. SIRDALUD [Suspect]
     Indication: SCIATICA
     Route: 048
     Dates: start: 20131213, end: 20131214
  3. MINIRIN/DDAVP [Concomitant]
     Indication: PRODUCT USED FOR UNKNOWN INDICATION
     Route: 065
  4. DIAMICRON [Concomitant]
     Indication: PRODUCT USED FOR UNKNOWN INDICATION
     Route: 048
  5. GLUCOPHAGE [Concomitant]
     Indication: PRODUCT USED FOR UNKNOWN INDICATION
     Route: 048

REACTIONS (2)
  - Malaise [Recovered/Resolved]
  - Presyncope [Recovered/Resolved]
